FAERS Safety Report 13738456 (Version 1)
Quarter: 2017Q3

REPORT INFORMATION
  Report Type: Report from Study
  Country: US (occurrence: US)
  Receive Date: 20170710
  Receipt Date: 20170710
  Transmission Date: 20171127
  Serious: No
  Sender: FDA-Public Use
  Company Number: US-SAOL THERAPEUTICS-2016SAO01248

PATIENT
  Age: 56 Year
  Sex: Female

DRUGS (4)
  1. MORPHINE [Suspect]
     Active Substance: MORPHINE
     Dosage: 59.96 ?G, \DAY
     Route: 037
     Dates: start: 20151218, end: 20160105
  2. MORPHINE [Suspect]
     Active Substance: MORPHINE
     Dosage: 70.88 ?G, \DAY
     Dates: start: 20160105, end: 20160105
  3. MORPHINE [Suspect]
     Active Substance: MORPHINE
     Dosage: 84.50 ?G, \DAY
     Dates: start: 20160105
  4. BACLOFEN. [Suspect]
     Active Substance: BACLOFEN
     Dosage: UNK
     Dates: end: 20160317

REACTIONS (4)
  - Somnolence [Recovered/Resolved]
  - Implant site pain [Recovering/Resolving]
  - Sedation [Recovering/Resolving]
  - Nausea [Recovering/Resolving]

NARRATIVE: CASE EVENT DATE: 2016
